FAERS Safety Report 23734895 (Version 2)
Quarter: 2024Q2

REPORT INFORMATION
  Report Type: Report from Study
  Country: US (occurrence: US)
  Receive Date: 20240412
  Receipt Date: 20240614
  Transmission Date: 20240715
  Serious: Yes (Hospitalization)
  Sender: FDA-Public Use
  Company Number: US-UCBSA-2024017432

PATIENT
  Sex: Female

DRUGS (2)
  1. FINTEPLA [Suspect]
     Active Substance: FENFLURAMINE
     Indication: Lennox-Gastaut syndrome
     Dosage: 2.8 MILLILITER, 2X/DAY (BID)
     Dates: start: 20240312
  2. FINTEPLA [Suspect]
     Active Substance: FENFLURAMINE
     Dosage: 2.8 MILLILITER, 2X/DAY (BID)
     Dates: start: 2024

REACTIONS (3)
  - Spinal operation [Not Recovered/Not Resolved]
  - Postoperative wound infection [Recovered/Resolved]
  - Lethargy [Not Recovered/Not Resolved]

NARRATIVE: CASE EVENT DATE: 20240101
